FAERS Safety Report 21022724 (Version 2)
Quarter: 2024Q2

REPORT INFORMATION
  Report Type: Spontaneous
  Country: CA (occurrence: CA)
  Receive Date: 20220629
  Receipt Date: 20240411
  Transmission Date: 20240715
  Serious: Yes (Other)
  Sender: FDA-Public Use
  Company Number: CA-AstraZeneca-2020SF40777

PATIENT
  Age: 60 Year
  Sex: Female
  Weight: 61 kg

DRUGS (42)
  1. ALVESCO [Suspect]
     Active Substance: CICLESONIDE
     Route: 055
     Dates: start: 201804
  2. ALVESCO [Suspect]
     Active Substance: CICLESONIDE
     Route: 055
  3. ALVESCO [Suspect]
     Active Substance: CICLESONIDE
     Route: 055
  4. ALVESCO [Suspect]
     Active Substance: CICLESONIDE
     Route: 055
  5. ATIVAN [Suspect]
     Active Substance: LORAZEPAM
     Route: 065
  6. ATIVAN [Suspect]
     Active Substance: LORAZEPAM
     Route: 065
  7. ANORO ELLIPTA [Suspect]
     Active Substance: UMECLIDINIUM BROMIDE\VILANTEROL TRIFENATATE
     Route: 065
  8. BREO ELLIPTA [Suspect]
     Active Substance: FLUTICASONE FUROATE\VILANTEROL TRIFENATATE
     Route: 055
  9. CALCIUM CARBONATE [Suspect]
     Active Substance: CALCIUM CARBONATE
     Route: 065
  10. CALCIUM CARBONATE [Suspect]
     Active Substance: CALCIUM CARBONATE
     Route: 065
  11. CALCIUM CARBONATE [Suspect]
     Active Substance: CALCIUM CARBONATE
  12. CEFUROXIME AXETIL [Suspect]
     Active Substance: CEFUROXIME AXETIL
     Route: 065
  13. CEFUROXIME AXETIL [Suspect]
     Active Substance: CEFUROXIME AXETIL
     Route: 065
  14. CELEXA [Suspect]
     Active Substance: CITALOPRAM HYDROBROMIDE
     Route: 065
  15. CELEXA [Suspect]
     Active Substance: CITALOPRAM HYDROBROMIDE
     Route: 065
  16. HIZENTRA [Suspect]
     Active Substance: HUMAN IMMUNOGLOBULIN G
     Route: 058
  17. MOXIFLOXACIN HYDROCHLORIDE [Suspect]
     Active Substance: MOXIFLOXACIN HYDROCHLORIDE\MOXIFLOXACIN HYDROCHLORIDE MONOHYDRATE
     Route: 065
  18. MOXIFLOXACIN HYDROCHLORIDE [Suspect]
     Active Substance: MOXIFLOXACIN HYDROCHLORIDE\MOXIFLOXACIN HYDROCHLORIDE MONOHYDRATE
     Route: 065
  19. RABEPRAZOLE SODIUM [Suspect]
     Active Substance: RABEPRAZOLE SODIUM
     Route: 065
  20. RABEPRAZOLE SODIUM [Suspect]
     Active Substance: RABEPRAZOLE SODIUM
     Route: 065
  21. PREDNISONE [Suspect]
     Active Substance: PREDNISONE
     Route: 065
  22. PREDNISONE [Suspect]
     Active Substance: PREDNISONE
     Route: 065
  23. PREDNISONE [Suspect]
     Active Substance: PREDNISONE
  24. ALBUTEROL SULFATE [Suspect]
     Active Substance: ALBUTEROL SULFATE
     Indication: Asthma
     Route: 065
  25. UMECLIDINIUM BROMIDE\VILANTEROL TRIFENATATE [Suspect]
     Active Substance: UMECLIDINIUM BROMIDE\VILANTEROL TRIFENATATE
     Route: 065
     Dates: start: 201804
  26. UMECLIDINIUM BROMIDE\VILANTEROL TRIFENATATE [Suspect]
     Active Substance: UMECLIDINIUM BROMIDE\VILANTEROL TRIFENATATE
     Route: 065
  27. VITAMIN D [Suspect]
     Active Substance: VITAMIN D NOS
     Route: 065
  28. WELLBUTRIN [Suspect]
     Active Substance: BUPROPION HYDROCHLORIDE
     Route: 065
  29. WELLBUTRIN [Suspect]
     Active Substance: BUPROPION HYDROCHLORIDE
     Route: 065
  30. WELLBUTRIN [Suspect]
     Active Substance: BUPROPION HYDROCHLORIDE
     Route: 065
  31. WELLBUTRIN [Suspect]
     Active Substance: BUPROPION HYDROCHLORIDE
     Route: 065
  32. WELLBUTRIN [Suspect]
     Active Substance: BUPROPION HYDROCHLORIDE
     Route: 065
  33. NICOTINE [Suspect]
     Active Substance: NICOTINE
     Route: 065
  34. AVELOX [Suspect]
     Active Substance: MOXIFLOXACIN HYDROCHLORIDE
     Route: 065
  35. CEFTIN [Suspect]
     Active Substance: CEFUROXIME AXETIL
     Route: 065
  36. ERGOCALCIFEROL [Suspect]
     Active Substance: ERGOCALCIFEROL
     Route: 065
  37. ERGOCALCIFEROL [Suspect]
     Active Substance: ERGOCALCIFEROL
     Route: 065
  38. ERGOCALCIFEROL [Suspect]
     Active Substance: ERGOCALCIFEROL
     Route: 065
  39. CITALOPRAM HYDROBROMIDE [Suspect]
     Active Substance: CITALOPRAM HYDROBROMIDE
     Route: 065
  40. CALCIUM CARBONATE [Suspect]
     Active Substance: CALCIUM CARBONATE
  41. CALCIUM\ERGOCALCIFEROL [Suspect]
     Active Substance: CALCIUM\ERGOCALCIFEROL
  42. UMECLIDINIUM BROMIDE [Suspect]
     Active Substance: UMECLIDINIUM BROMIDE

REACTIONS (16)
  - Asthma [Unknown]
  - Abdominal pain [Unknown]
  - Cough [Unknown]
  - Hypersensitivity [Unknown]
  - Abdominal distension [Unknown]
  - Full blood count abnormal [Unknown]
  - Constipation [Unknown]
  - Drug intolerance [Unknown]
  - Fatigue [Unknown]
  - Myalgia [Unknown]
  - Nicotine dependence [Unknown]
  - Obstructive airways disorder [Unknown]
  - Secondary immunodeficiency [Unknown]
  - Sputum purulent [Unknown]
  - Wheezing [Unknown]
  - Therapeutic product effect incomplete [Unknown]
